FAERS Safety Report 13967807 (Version 1)
Quarter: 2017Q3

REPORT INFORMATION
  Report Type: Other
  Country: NO (occurrence: NO)
  Receive Date: 20170914
  Receipt Date: 20170914
  Transmission Date: 20171128
  Serious: Yes (Other)
  Sender: FDA-Public Use
  Company Number: NO-GLENMARK PHARMACEUTICALS-2017GMK028815

PATIENT

DRUGS (1)
  1. LAMOTRIGINE. [Suspect]
     Active Substance: LAMOTRIGINE
     Indication: PRODUCT USED FOR UNKNOWN INDICATION
     Dosage: UNK
     Route: 065

REACTIONS (5)
  - Respiratory alkalosis [Recovering/Resolving]
  - Rash generalised [Recovering/Resolving]
  - Disseminated intravascular coagulation [Recovering/Resolving]
  - Hepatic enzyme abnormal [Recovered/Resolved]
  - Pyrexia [Recovering/Resolving]
